FAERS Safety Report 4686289-2 (Version None)
Quarter: 2005Q2

REPORT INFORMATION
  Report Type: 
  Country: None (occurrence: None)
  Receive Date: 20050606
  Receipt Date: 20050523
  Transmission Date: 20051028
  Serious: Yes (Hospitalization, Other)
  Sender: FDA-Public Use
  Company Number: 2005078510

PATIENT
  Age: 83 Year
  Sex: Male
  Weight: 99.7913 kg

DRUGS (5)
  1. DETROL LA [Suspect]
     Indication: HYPERTONIC BLADDER
     Dosage: 4 MG (4 MG, 1 IN 1 D), ORAL
     Route: 048
  2. DETROL LA [Suspect]
     Indication: MICTURITION URGENCY
     Dosage: 4 MG (4 MG, 1 IN 1 D), ORAL
     Route: 048
  3. DETROL LA [Suspect]
     Indication: POLLAKIURIA
     Dosage: 4 MG (4 MG, 1 IN 1 D), ORAL
     Route: 048
  4. TOPROL (METOPROLOL) [Concomitant]
  5. MULTIVITAMIN [Concomitant]

REACTIONS (3)
  - ENDOCRINE DISORDER [None]
  - PULMONARY EMBOLISM [None]
  - THYROID NEOPLASM [None]
